FAERS Safety Report 10652527 (Version 2)
Quarter: 2014Q4

REPORT INFORMATION
  Report Type: Report from Study
  Country: GB (occurrence: GB)
  Receive Date: 20141215
  Receipt Date: 20141215
  Transmission Date: 20150529
  Serious: Yes (Other)
  Sender: FDA-Public Use
  Company Number: GB-UCBSA-2014020240

PATIENT
  Sex: Male

DRUGS (1)
  1. CERTOLIZUMAB PEGOL [Suspect]
     Active Substance: CERTOLIZUMAB PEGOL
     Indication: ANKYLOSING SPONDYLITIS
     Dosage: 400 MG, EV 2 WEEKS(QOW), LOADING DOSE
     Route: 058
     Dates: start: 20141105

REACTIONS (5)
  - Erythema [Unknown]
  - Dizziness [Unknown]
  - Palpitations [Not Recovered/Not Resolved]
  - Electrocardiogram abnormal [Unknown]
  - Rash [Unknown]

NARRATIVE: CASE EVENT DATE: 2014
